FAERS Safety Report 23743277 (Version 5)
Quarter: 2025Q2

REPORT INFORMATION
  Report Type: Spontaneous
  Country: CA (occurrence: CA)
  Receive Date: 20240415
  Receipt Date: 20250620
  Transmission Date: 20250716
  Serious: Yes (Death, Life-Threatening, Hospitalization, Disabling, Other)
  Sender: NOVARTIS
  Company Number: CA-SANDOZ-SDZ2023CA076137

PATIENT
  Age: 44 Year
  Sex: Female
  Weight: 158 kg

DRUGS (599)
  1. ERELZI [Suspect]
     Active Substance: ETANERCEPT-SZZS
     Indication: Rheumatoid arthritis
     Route: 058
  2. ERELZI [Suspect]
     Active Substance: ETANERCEPT-SZZS
     Route: 065
  3. ERELZI [Suspect]
     Active Substance: ETANERCEPT-SZZS
     Dosage: 50 MG, QW
     Route: 058
  4. ACETAMINOPHEN [Suspect]
     Active Substance: ACETAMINOPHEN
     Indication: Rheumatoid arthritis
     Route: 065
  5. ACETAMINOPHEN [Suspect]
     Active Substance: ACETAMINOPHEN
     Indication: Pain
     Route: 065
  6. ACETAMINOPHEN [Suspect]
     Active Substance: ACETAMINOPHEN
     Indication: Pyrexia
     Dosage: 1000 MG, QD
     Route: 065
  7. ACETAMINOPHEN [Suspect]
     Active Substance: ACETAMINOPHEN
     Route: 065
  8. CELECOXIB [Suspect]
     Active Substance: CELECOXIB
     Indication: Rheumatoid arthritis
     Route: 065
  9. CELECOXIB [Suspect]
     Active Substance: CELECOXIB
     Indication: Psoriatic arthropathy
     Dosage: 1 DOSAGE FORM, QD
     Route: 065
  10. CELECOXIB [Suspect]
     Active Substance: CELECOXIB
     Dosage: 1 DOSAGE FORM, QD
     Route: 065
  11. CELECOXIB [Suspect]
     Active Substance: CELECOXIB
     Dosage: 2 DOSAGE FORM, QD
     Route: 048
  12. COSENTYX [Suspect]
     Active Substance: SECUKINUMAB
     Indication: Psoriatic arthropathy
     Route: 065
  13. COSENTYX [Suspect]
     Active Substance: SECUKINUMAB
     Indication: Rheumatoid arthritis
     Route: 005
  14. DICLOFENAC SODIUM [Suspect]
     Active Substance: DICLOFENAC SODIUM
     Indication: Product used for unknown indication
     Route: 058
  15. DICLOFENAC SODIUM [Suspect]
     Active Substance: DICLOFENAC SODIUM
     Route: 058
  16. DICLOFENAC SODIUM [Suspect]
     Active Substance: DICLOFENAC SODIUM
     Route: 047
  17. DICLOFENAC SODIUM [Suspect]
     Active Substance: DICLOFENAC SODIUM
     Dosage: 50 MG, QD
     Route: 058
  18. DICLOFENAC SODIUM [Suspect]
     Active Substance: DICLOFENAC SODIUM
     Route: 065
  19. DICLOFENAC SODIUM [Suspect]
     Active Substance: DICLOFENAC SODIUM
     Route: 058
  20. DICLOFENAC SODIUM [Suspect]
     Active Substance: DICLOFENAC SODIUM
     Route: 048
  21. DICLOFENAC SODIUM [Suspect]
     Active Substance: DICLOFENAC SODIUM
     Route: 065
  22. DICLOFENAC SODIUM [Suspect]
     Active Substance: DICLOFENAC SODIUM
     Route: 065
  23. DICLOFENAC SODIUM [Suspect]
     Active Substance: DICLOFENAC SODIUM
     Route: 065
  24. DICLOFENAC SODIUM [Suspect]
     Active Substance: DICLOFENAC SODIUM
     Dosage: 50 MG, QD
     Route: 065
  25. DICLOFENAC SODIUM [Suspect]
     Active Substance: DICLOFENAC SODIUM
     Route: 058
  26. CETIRIZINE [Suspect]
     Active Substance: CETIRIZINE HYDROCHLORIDE
     Indication: Rheumatoid arthritis
     Route: 065
  27. CETIRIZINE [Suspect]
     Active Substance: CETIRIZINE HYDROCHLORIDE
     Route: 048
  28. CETIRIZINE [Suspect]
     Active Substance: CETIRIZINE HYDROCHLORIDE
     Route: 048
  29. CETIRIZINE [Suspect]
     Active Substance: CETIRIZINE HYDROCHLORIDE
     Route: 048
  30. CETIRIZINE [Suspect]
     Active Substance: CETIRIZINE HYDROCHLORIDE
     Route: 048
  31. CETIRIZINE [Suspect]
     Active Substance: CETIRIZINE HYDROCHLORIDE
     Route: 048
  32. CETIRIZINE [Suspect]
     Active Substance: CETIRIZINE HYDROCHLORIDE
     Route: 048
  33. CETIRIZINE [Suspect]
     Active Substance: CETIRIZINE HYDROCHLORIDE
     Dosage: 10 MG, QD
     Route: 048
  34. CETIRIZINE [Suspect]
     Active Substance: CETIRIZINE HYDROCHLORIDE
     Route: 065
  35. CETIRIZINE [Suspect]
     Active Substance: CETIRIZINE HYDROCHLORIDE
     Route: 065
  36. ALENDRONIC ACID [Suspect]
     Active Substance: ALENDRONIC ACID
     Indication: Rheumatoid arthritis
     Route: 048
  37. ALENDRONIC ACID [Suspect]
     Active Substance: ALENDRONIC ACID
     Route: 048
  38. ALENDRONIC ACID [Suspect]
     Active Substance: ALENDRONIC ACID
     Route: 065
  39. ALENDRONIC ACID [Suspect]
     Active Substance: ALENDRONIC ACID
     Route: 065
  40. ALENDRONIC ACID [Suspect]
     Active Substance: ALENDRONIC ACID
     Route: 048
  41. ALENDRONIC ACID [Suspect]
     Active Substance: ALENDRONIC ACID
     Route: 065
  42. MYCOPHENOLATE MOFETIL [Suspect]
     Active Substance: MYCOPHENOLATE MOFETIL
     Indication: Rheumatoid arthritis
     Route: 065
  43. HYDROCORTISONE [Suspect]
     Active Substance: HYDROCORTISONE
     Indication: Rheumatoid arthritis
     Route: 065
  44. HYDROCORTISONE [Suspect]
     Active Substance: HYDROCORTISONE
     Route: 065
  45. HYDROCORTISONE [Suspect]
     Active Substance: HYDROCORTISONE
     Route: 048
  46. HYDROCORTISONE [Suspect]
     Active Substance: HYDROCORTISONE
     Route: 003
  47. HYDROCORTISONE [Suspect]
     Active Substance: HYDROCORTISONE
     Route: 058
  48. HYDROCORTISONE [Suspect]
     Active Substance: HYDROCORTISONE
     Route: 048
  49. HYDROCORTISONE [Suspect]
     Active Substance: HYDROCORTISONE
     Route: 065
  50. DICLOFENAC POTASSIUM [Suspect]
     Active Substance: DICLOFENAC POTASSIUM
     Indication: Product used for unknown indication
     Route: 065
  51. DICLOFENAC POTASSIUM [Suspect]
     Active Substance: DICLOFENAC POTASSIUM
     Route: 058
  52. DICLOFENAC POTASSIUM [Suspect]
     Active Substance: DICLOFENAC POTASSIUM
     Route: 065
  53. DICLOFENAC POTASSIUM [Suspect]
     Active Substance: DICLOFENAC POTASSIUM
     Route: 048
  54. DICLOFENAC POTASSIUM [Suspect]
     Active Substance: DICLOFENAC POTASSIUM
     Route: 047
  55. DICLOFENAC POTASSIUM [Suspect]
     Active Substance: DICLOFENAC POTASSIUM
     Dosage: 50 MG, QD
     Route: 058
  56. DICLOFENAC POTASSIUM [Suspect]
     Active Substance: DICLOFENAC POTASSIUM
     Route: 058
  57. ADALIMUMAB [Suspect]
     Active Substance: ADALIMUMAB
     Indication: Psoriatic arthropathy
     Route: 048
  58. ADALIMUMAB [Suspect]
     Active Substance: ADALIMUMAB
     Route: 058
  59. ADALIMUMAB [Suspect]
     Active Substance: ADALIMUMAB
     Route: 058
  60. ADALIMUMAB [Suspect]
     Active Substance: ADALIMUMAB
     Route: 058
  61. DOXYCYCLINE [Suspect]
     Active Substance: DOXYCYCLINE
     Indication: Product used for unknown indication
     Route: 065
  62. FOLIC ACID [Suspect]
     Active Substance: FOLIC ACID
     Indication: Rheumatoid arthritis
     Route: 058
  63. FOLIC ACID [Suspect]
     Active Substance: FOLIC ACID
     Route: 048
  64. FOLIC ACID [Suspect]
     Active Substance: FOLIC ACID
     Route: 048
  65. FOLIC ACID [Suspect]
     Active Substance: FOLIC ACID
     Route: 065
  66. FOLIC ACID [Suspect]
     Active Substance: FOLIC ACID
     Route: 065
  67. FOLIC ACID [Suspect]
     Active Substance: FOLIC ACID
     Route: 058
  68. FOLIC ACID [Suspect]
     Active Substance: FOLIC ACID
     Route: 048
  69. FOLIC ACID [Suspect]
     Active Substance: FOLIC ACID
     Dosage: 1 MG, QD
     Route: 065
  70. FOLIC ACID [Suspect]
     Active Substance: FOLIC ACID
     Route: 048
  71. FOLIC ACID [Suspect]
     Active Substance: FOLIC ACID
     Route: 065
  72. FOLIC ACID [Suspect]
     Active Substance: FOLIC ACID
     Dosage: 5 MG, QD
     Route: 048
  73. FOLIC ACID [Suspect]
     Active Substance: FOLIC ACID
     Route: 065
  74. FOLIC ACID [Suspect]
     Active Substance: FOLIC ACID
     Route: 048
  75. FOLIC ACID [Suspect]
     Active Substance: FOLIC ACID
     Dosage: 5 MG, QD
     Route: 065
  76. FOLIC ACID [Suspect]
     Active Substance: FOLIC ACID
     Dosage: 1 MG, QD
     Route: 065
  77. FOLIC ACID [Suspect]
     Active Substance: FOLIC ACID
     Route: 065
  78. FOLIC ACID [Suspect]
     Active Substance: FOLIC ACID
     Route: 065
  79. FOLIC ACID [Suspect]
     Active Substance: FOLIC ACID
     Route: 048
  80. FOLIC ACID [Suspect]
     Active Substance: FOLIC ACID
     Route: 048
  81. FOLIC ACID [Suspect]
     Active Substance: FOLIC ACID
     Route: 065
  82. FOLIC ACID [Suspect]
     Active Substance: FOLIC ACID
     Route: 065
  83. FOLIC ACID [Suspect]
     Active Substance: FOLIC ACID
     Route: 065
  84. FOLIC ACID [Suspect]
     Active Substance: FOLIC ACID
     Dosage: 5 MG, QD
     Route: 048
  85. OXYCODONE [Suspect]
     Active Substance: OXYCODONE
     Indication: Product used for unknown indication
     Route: 065
  86. OXYCODONE [Suspect]
     Active Substance: OXYCODONE
     Route: 065
  87. OXYCODONE [Suspect]
     Active Substance: OXYCODONE
     Route: 065
  88. OXYCODONE [Suspect]
     Active Substance: OXYCODONE
     Route: 065
  89. LEFLUNOMIDE [Suspect]
     Active Substance: LEFLUNOMIDE
     Indication: Rheumatoid arthritis
     Route: 048
  90. LEFLUNOMIDE [Suspect]
     Active Substance: LEFLUNOMIDE
     Route: 065
  91. LEFLUNOMIDE [Suspect]
     Active Substance: LEFLUNOMIDE
     Route: 048
  92. METHOTREXATE [Suspect]
     Active Substance: METHOTREXATE
     Indication: Rheumatoid arthritis
     Route: 055
  93. METHOTREXATE [Suspect]
     Active Substance: METHOTREXATE
     Indication: Product used for unknown indication
     Route: 048
  94. METHOTREXATE [Suspect]
     Active Substance: METHOTREXATE
     Dosage: 25 MG, QW (1 EVERY 1 WEEKS)
     Route: 058
  95. METHOTREXATE [Suspect]
     Active Substance: METHOTREXATE
     Route: 048
  96. METHOTREXATE [Suspect]
     Active Substance: METHOTREXATE
     Route: 013
  97. METHOTREXATE [Suspect]
     Active Substance: METHOTREXATE
     Route: 048
  98. METHOTREXATE [Suspect]
     Active Substance: METHOTREXATE
     Route: 065
  99. METHOTREXATE [Suspect]
     Active Substance: METHOTREXATE
     Route: 013
  100. METHOTREXATE [Suspect]
     Active Substance: METHOTREXATE
     Route: 048
  101. METHOTREXATE [Suspect]
     Active Substance: METHOTREXATE
     Dosage: 2 DOSAGE FORM, QD
     Route: 048
  102. METHOTREXATE [Suspect]
     Active Substance: METHOTREXATE
     Route: 048
  103. METHOTREXATE [Suspect]
     Active Substance: METHOTREXATE
     Route: 065
  104. METHOTREXATE [Suspect]
     Active Substance: METHOTREXATE
     Route: 065
  105. METHOTREXATE [Suspect]
     Active Substance: METHOTREXATE
     Dosage: 25 MG, QD
     Route: 048
  106. METHOTREXATE [Suspect]
     Active Substance: METHOTREXATE
     Route: 048
  107. METHOTREXATE [Suspect]
     Active Substance: METHOTREXATE
     Route: 048
  108. METHOTREXATE [Suspect]
     Active Substance: METHOTREXATE
     Route: 048
  109. METHOTREXATE [Suspect]
     Active Substance: METHOTREXATE
     Dosage: 20 MG, QD
     Route: 048
  110. METHOTREXATE [Suspect]
     Active Substance: METHOTREXATE
     Dosage: 25 MG, QD
     Route: 048
  111. METHOTREXATE [Suspect]
     Active Substance: METHOTREXATE
     Route: 048
  112. METHOTREXATE [Suspect]
     Active Substance: METHOTREXATE
     Dosage: 15 MG, QD
     Route: 048
  113. METHOTREXATE [Suspect]
     Active Substance: METHOTREXATE
     Dosage: 25 MG, QD
     Route: 058
  114. METHOTREXATE [Suspect]
     Active Substance: METHOTREXATE
     Dosage: 20 MG, QD
     Route: 065
  115. METHOTREXATE [Suspect]
     Active Substance: METHOTREXATE
     Dosage: 20 MG, QW (1 EVERY 1 WEEKS)
     Route: 058
  116. METHOTREXATE [Suspect]
     Active Substance: METHOTREXATE
     Dosage: 25 MG, QD
     Route: 048
  117. METHOTREXATE [Suspect]
     Active Substance: METHOTREXATE
     Dosage: 25 MG, QD
     Route: 013
  118. METHOTREXATE [Suspect]
     Active Substance: METHOTREXATE
     Dosage: 25 MG, QW (1 EVERY 1 WEEKS)
     Route: 037
  119. METHOTREXATE [Suspect]
     Active Substance: METHOTREXATE
     Route: 065
  120. METHOTREXATE [Suspect]
     Active Substance: METHOTREXATE
     Route: 065
  121. METHOTREXATE [Suspect]
     Active Substance: METHOTREXATE
     Dosage: 2 G, QD
     Route: 048
  122. METHOTREXATE [Suspect]
     Active Substance: METHOTREXATE
     Route: 048
  123. METHOTREXATE [Suspect]
     Active Substance: METHOTREXATE
     Route: 013
  124. METHOTREXATE [Suspect]
     Active Substance: METHOTREXATE
     Dosage: 20 MG, QW (1 EVERY 1 WEEKS)
     Route: 058
  125. METHOTREXATE [Suspect]
     Active Substance: METHOTREXATE
     Route: 065
  126. METHOTREXATE [Suspect]
     Active Substance: METHOTREXATE
     Dosage: 20 MG, QD
     Route: 048
  127. METHOTREXATE [Suspect]
     Active Substance: METHOTREXATE
     Dosage: 20 MG, QW (1 EVERY 1 WEEKS)
     Route: 058
  128. METHOTREXATE [Suspect]
     Active Substance: METHOTREXATE
     Dosage: 25 MG, QW (1 EVERY 1 WEEKS)
     Route: 048
  129. METHOTREXATE [Suspect]
     Active Substance: METHOTREXATE
     Route: 058
  130. METHOTREXATE [Suspect]
     Active Substance: METHOTREXATE
     Route: 058
  131. METHOTREXATE [Suspect]
     Active Substance: METHOTREXATE
     Route: 058
  132. METHOTREXATE [Suspect]
     Active Substance: METHOTREXATE
     Route: 065
  133. METHOTREXATE [Suspect]
     Active Substance: METHOTREXATE
     Route: 048
  134. METHOTREXATE [Suspect]
     Active Substance: METHOTREXATE
     Dosage: 2 G, QD
     Route: 048
  135. METHOTREXATE [Suspect]
     Active Substance: METHOTREXATE
     Dosage: 20 MG, QD
     Route: 048
  136. METHOTREXATE [Suspect]
     Active Substance: METHOTREXATE
     Dosage: 20 MG, QD
     Route: 048
  137. METHOTREXATE [Suspect]
     Active Substance: METHOTREXATE
     Dosage: 20 MG, QD
     Route: 048
  138. METHOTREXATE [Suspect]
     Active Substance: METHOTREXATE
     Route: 048
  139. METHOTREXATE [Suspect]
     Active Substance: METHOTREXATE
     Route: 065
  140. METHOTREXATE [Suspect]
     Active Substance: METHOTREXATE
     Route: 013
  141. METHOTREXATE [Suspect]
     Active Substance: METHOTREXATE
     Dosage: 20 MG, QD
     Route: 048
  142. PANTOPRAZOLE [Suspect]
     Active Substance: PANTOPRAZOLE
     Indication: Product used for unknown indication
     Route: 065
  143. CORTISONE [Suspect]
     Active Substance: CORTISONE
     Indication: Rheumatoid arthritis
     Route: 048
  144. CORTISONE [Suspect]
     Active Substance: CORTISONE
     Route: 058
  145. CORTISONE [Suspect]
     Active Substance: CORTISONE
     Route: 003
  146. CORTISONE [Suspect]
     Active Substance: CORTISONE
     Route: 048
  147. CORTISONE [Suspect]
     Active Substance: CORTISONE
     Route: 003
  148. CORTISONE [Suspect]
     Active Substance: CORTISONE
     Route: 003
  149. CORTISONE [Suspect]
     Active Substance: CORTISONE
     Route: 065
  150. CORTISONE [Suspect]
     Active Substance: CORTISONE
     Route: 048
  151. CORTISONE [Suspect]
     Active Substance: CORTISONE
     Route: 003
  152. CORTISONE [Suspect]
     Active Substance: CORTISONE
     Route: 058
  153. CORTISONE [Suspect]
     Active Substance: CORTISONE
     Route: 048
  154. CORTISONE [Suspect]
     Active Substance: CORTISONE
     Route: 061
  155. CORTISONE [Suspect]
     Active Substance: CORTISONE
     Route: 058
  156. INFLIXIMAB [Suspect]
     Active Substance: INFLIXIMAB
     Indication: Rheumatoid arthritis
     Route: 042
  157. INFLIXIMAB [Suspect]
     Active Substance: INFLIXIMAB
     Route: 042
  158. INFLIXIMAB [Suspect]
     Active Substance: INFLIXIMAB
     Route: 042
  159. INFLIXIMAB [Suspect]
     Active Substance: INFLIXIMAB
     Route: 065
  160. INFLIXIMAB [Suspect]
     Active Substance: INFLIXIMAB
     Route: 065
  161. INFLIXIMAB [Suspect]
     Active Substance: INFLIXIMAB
     Route: 065
  162. INFLIXIMAB [Suspect]
     Active Substance: INFLIXIMAB
     Route: 042
  163. RITUXIMAB [Suspect]
     Active Substance: RITUXIMAB
     Indication: Rheumatoid arthritis
     Route: 042
  164. RITUXIMAB [Suspect]
     Active Substance: RITUXIMAB
     Route: 058
  165. RITUXIMAB [Suspect]
     Active Substance: RITUXIMAB
     Route: 042
  166. RITUXIMAB [Suspect]
     Active Substance: RITUXIMAB
     Route: 042
  167. VOLTAREN [Suspect]
     Active Substance: DICLOFENAC SODIUM
     Indication: Product used for unknown indication
     Route: 058
  168. VOLTAREN [Suspect]
     Active Substance: DICLOFENAC SODIUM
     Route: 048
  169. VOLTAREN [Suspect]
     Active Substance: DICLOFENAC SODIUM
     Dosage: 50 MG, QD
     Route: 058
  170. VOLTAREN [Suspect]
     Active Substance: DICLOFENAC SODIUM
     Route: 031
  171. VOLTAREN [Suspect]
     Active Substance: DICLOFENAC SODIUM
     Route: 065
  172. VOLTAREN [Suspect]
     Active Substance: DICLOFENAC SODIUM
     Route: 058
  173. VOLTAREN [Suspect]
     Active Substance: DICLOFENAC SODIUM
     Route: 065
  174. ACTEMRA [Suspect]
     Active Substance: TOCILIZUMAB
     Indication: Rheumatoid arthritis
     Route: 058
  175. ACTEMRA [Suspect]
     Active Substance: TOCILIZUMAB
     Route: 042
  176. ACTEMRA [Suspect]
     Active Substance: TOCILIZUMAB
     Route: 065
  177. ACTEMRA [Suspect]
     Active Substance: TOCILIZUMAB
     Route: 042
  178. ACTEMRA [Suspect]
     Active Substance: TOCILIZUMAB
     Route: 042
  179. ACTEMRA [Suspect]
     Active Substance: TOCILIZUMAB
     Route: 042
  180. ACTEMRA [Suspect]
     Active Substance: TOCILIZUMAB
     Route: 065
  181. ACTEMRA [Suspect]
     Active Substance: TOCILIZUMAB
     Route: 065
  182. ACTEMRA [Suspect]
     Active Substance: TOCILIZUMAB
     Route: 042
  183. ACTEMRA [Suspect]
     Active Substance: TOCILIZUMAB
     Route: 065
  184. ACTEMRA [Suspect]
     Active Substance: TOCILIZUMAB
     Route: 042
  185. ACTEMRA [Suspect]
     Active Substance: TOCILIZUMAB
     Route: 042
  186. ACTEMRA [Suspect]
     Active Substance: TOCILIZUMAB
     Route: 042
  187. ACTEMRA [Suspect]
     Active Substance: TOCILIZUMAB
     Route: 042
  188. ACTEMRA [Suspect]
     Active Substance: TOCILIZUMAB
     Route: 042
  189. ACTEMRA [Suspect]
     Active Substance: TOCILIZUMAB
     Route: 042
  190. APREMILAST [Suspect]
     Active Substance: APREMILAST
     Indication: Product used for unknown indication
     Route: 065
  191. APREMILAST [Suspect]
     Active Substance: APREMILAST
     Route: 042
  192. APREMILAST [Suspect]
     Active Substance: APREMILAST
     Route: 048
  193. APREMILAST [Suspect]
     Active Substance: APREMILAST
     Route: 048
  194. PREDNISONE [Suspect]
     Active Substance: PREDNISONE
     Indication: Rheumatoid arthritis
     Route: 048
  195. PREDNISONE [Suspect]
     Active Substance: PREDNISONE
     Route: 065
  196. PREDNISONE [Suspect]
     Active Substance: PREDNISONE
     Route: 065
  197. PREDNISONE [Suspect]
     Active Substance: PREDNISONE
     Route: 048
  198. ARAVA [Suspect]
     Active Substance: LEFLUNOMIDE
     Indication: Rheumatoid arthritis
     Dosage: 20 MG, QD
     Route: 048
  199. ARAVA [Suspect]
     Active Substance: LEFLUNOMIDE
     Route: 065
  200. ARAVA [Suspect]
     Active Substance: LEFLUNOMIDE
     Route: 048
  201. ARAVA [Suspect]
     Active Substance: LEFLUNOMIDE
     Dosage: 20 MG, QD
     Route: 048
  202. CELEBREX [Suspect]
     Active Substance: CELECOXIB
     Indication: Product used for unknown indication
     Dosage: 2 DOSAGE FORM, QD
     Route: 048
  203. CELEBREX [Suspect]
     Active Substance: CELECOXIB
     Dosage: 1 DOSAGE FORM, QD
     Route: 065
  204. CHLORAPREP [Suspect]
     Active Substance: CHLORHEXIDINE GLUCONATE\ISOPROPYL ALCOHOL
     Indication: Psoriatic arthropathy
     Route: 065
  205. CHLORAPREP [Suspect]
     Active Substance: CHLORHEXIDINE GLUCONATE\ISOPROPYL ALCOHOL
     Indication: Synovitis
     Route: 065
  206. CHLORAPREP [Suspect]
     Active Substance: CHLORHEXIDINE GLUCONATE\ISOPROPYL ALCOHOL
     Indication: Rheumatoid arthritis
     Route: 065
  207. CHLORAPREP [Suspect]
     Active Substance: CHLORHEXIDINE GLUCONATE\ISOPROPYL ALCOHOL
     Route: 048
  208. CHLORAPREP [Suspect]
     Active Substance: CHLORHEXIDINE GLUCONATE\ISOPROPYL ALCOHOL
     Route: 048
  209. CHLORAPREP [Suspect]
     Active Substance: CHLORHEXIDINE GLUCONATE\ISOPROPYL ALCOHOL
     Route: 048
  210. CHLORHEXIDINE [Suspect]
     Active Substance: CHLORHEXIDINE
     Indication: Product used for unknown indication
     Route: 065
  211. CHLORHEXIDINE [Suspect]
     Active Substance: CHLORHEXIDINE
     Route: 048
  212. CHLORHEXIDINE [Suspect]
     Active Substance: CHLORHEXIDINE
     Route: 065
  213. CHLORHEXIDINE [Suspect]
     Active Substance: CHLORHEXIDINE
     Route: 002
  214. CHLORHEXIDINE [Suspect]
     Active Substance: CHLORHEXIDINE
     Route: 048
  215. CHLORHEXIDINE GLUCONATE\ISOPROPYL ALCOHOL [Suspect]
     Active Substance: CHLORHEXIDINE GLUCONATE\ISOPROPYL ALCOHOL
     Indication: Product used for unknown indication
     Route: 002
  216. CHLORHEXIDINE GLUCONATE\ISOPROPYL ALCOHOL [Suspect]
     Active Substance: CHLORHEXIDINE GLUCONATE\ISOPROPYL ALCOHOL
     Route: 065
  217. CHLORHEXIDINE GLUCONATE\ISOPROPYL ALCOHOL [Suspect]
     Active Substance: CHLORHEXIDINE GLUCONATE\ISOPROPYL ALCOHOL
     Route: 048
  218. CIMZIA [Suspect]
     Active Substance: CERTOLIZUMAB PEGOL
     Indication: Rheumatoid arthritis
     Route: 058
  219. CIMZIA [Suspect]
     Active Substance: CERTOLIZUMAB PEGOL
     Route: 058
  220. CIMZIA [Suspect]
     Active Substance: CERTOLIZUMAB PEGOL
     Route: 065
  221. CIMZIA [Suspect]
     Active Substance: CERTOLIZUMAB PEGOL
     Route: 065
  222. CIMZIA [Suspect]
     Active Substance: CERTOLIZUMAB PEGOL
     Dosage: 1 DOSAGE FORM, QD
     Route: 058
  223. CIMZIA [Suspect]
     Active Substance: CERTOLIZUMAB PEGOL
     Route: 058
  224. CIMZIA [Suspect]
     Active Substance: CERTOLIZUMAB PEGOL
     Route: 065
  225. CIMZIA [Suspect]
     Active Substance: CERTOLIZUMAB PEGOL
     Route: 065
  226. CIMZIA [Suspect]
     Active Substance: CERTOLIZUMAB PEGOL
     Route: 058
  227. CIMZIA [Suspect]
     Active Substance: CERTOLIZUMAB PEGOL
     Route: 058
  228. MINERALS\VITAMINS [Suspect]
     Active Substance: MINERALS\VITAMINS
     Indication: Product used for unknown indication
     Route: 065
  229. MINERALS\VITAMINS [Suspect]
     Active Substance: MINERALS\VITAMINS
     Route: 065
  230. CORTISONE ACETATE [Suspect]
     Active Substance: CORTISONE ACETATE
     Indication: Rheumatoid arthritis
     Dosage: 25 MG, QD (TOPICAL)
     Route: 065
  231. CORTISONE ACETATE [Suspect]
     Active Substance: CORTISONE ACETATE
     Route: 048
  232. CORTISONE ACETATE [Suspect]
     Active Substance: CORTISONE ACETATE
     Route: 065
  233. CORTISONE ACETATE [Suspect]
     Active Substance: CORTISONE ACETATE
     Route: 065
  234. CORTISONE ACETATE [Suspect]
     Active Substance: CORTISONE ACETATE
     Route: 003
  235. CORTISONE ACETATE [Suspect]
     Active Substance: CORTISONE ACETATE
     Route: 065
  236. CORTISONE ACETATE [Suspect]
     Active Substance: CORTISONE ACETATE
     Route: 065
  237. CORTISONE ACETATE [Suspect]
     Active Substance: CORTISONE ACETATE
     Route: 048
  238. CORTISONE ACETATE [Suspect]
     Active Substance: CORTISONE ACETATE
     Route: 048
  239. CORTISONE ACETATE [Suspect]
     Active Substance: CORTISONE ACETATE
     Route: 048
  240. CORTISONE ACETATE [Suspect]
     Active Substance: CORTISONE ACETATE
     Route: 065
  241. CORTISONE ACETATE [Suspect]
     Active Substance: CORTISONE ACETATE
     Indication: Rheumatoid arthritis
     Route: 061
  242. CORTISONE ACETATE [Suspect]
     Active Substance: CORTISONE ACETATE
     Route: 048
  243. CORTISONE ACETATE [Suspect]
     Active Substance: CORTISONE ACETATE
     Route: 048
  244. CORTISONE ACETATE [Suspect]
     Active Substance: CORTISONE ACETATE
     Route: 065
  245. CORTISONE ACETATE [Suspect]
     Active Substance: CORTISONE ACETATE
     Route: 048
  246. CORTISONE ACETATE [Suspect]
     Active Substance: CORTISONE ACETATE
     Route: 048
  247. CORTISONE ACETATE [Suspect]
     Active Substance: CORTISONE ACETATE
     Route: 065
  248. CORTISONE ACETATE [Suspect]
     Active Substance: CORTISONE ACETATE
     Route: 003
  249. CORTISONE ACETATE [Suspect]
     Active Substance: CORTISONE ACETATE
     Route: 065
  250. CORTISONE ACETATE [Suspect]
     Active Substance: CORTISONE ACETATE
     Route: 065
  251. CORTISONE ACETATE [Suspect]
     Active Substance: CORTISONE ACETATE
     Route: 058
  252. CORTISONE ACETATE [Suspect]
     Active Substance: CORTISONE ACETATE
     Route: 048
  253. CORTISONE ACETATE [Suspect]
     Active Substance: CORTISONE ACETATE
     Route: 058
  254. ENBREL [Suspect]
     Active Substance: ETANERCEPT
     Indication: Rheumatoid arthritis
     Route: 058
  255. ENBREL [Suspect]
     Active Substance: ETANERCEPT
     Indication: Psoriatic arthropathy
     Dosage: 20 MG, QW
     Route: 058
  256. ENBREL [Suspect]
     Active Substance: ETANERCEPT
     Route: 058
  257. ENBREL [Suspect]
     Active Substance: ETANERCEPT
     Dosage: 20 MG, QD
     Route: 058
  258. ENBREL [Suspect]
     Active Substance: ETANERCEPT
     Dosage: 50 MG, QW
     Route: 058
  259. ENBREL [Suspect]
     Active Substance: ETANERCEPT
     Route: 065
  260. ENBREL [Suspect]
     Active Substance: ETANERCEPT
     Dosage: 50 MG, QW (1 EVERY 1 WEEKS)
     Route: 065
  261. ENBREL [Suspect]
     Active Substance: ETANERCEPT
     Route: 058
  262. FOSAMAX [Suspect]
     Active Substance: ALENDRONATE SODIUM
     Indication: Rheumatoid arthritis
     Route: 058
  263. FOSAMAX [Suspect]
     Active Substance: ALENDRONATE SODIUM
     Route: 048
  264. FOSAMAX [Suspect]
     Active Substance: ALENDRONATE SODIUM
     Route: 065
  265. HUMIRA [Suspect]
     Active Substance: ADALIMUMAB
     Indication: Rheumatoid arthritis
     Route: 065
  266. HUMIRA [Suspect]
     Active Substance: ADALIMUMAB
     Indication: Psoriatic arthropathy
     Route: 058
  267. HUMIRA [Suspect]
     Active Substance: ADALIMUMAB
     Route: 058
  268. HUMIRA [Suspect]
     Active Substance: ADALIMUMAB
     Route: 058
  269. HUMIRA [Suspect]
     Active Substance: ADALIMUMAB
     Route: 058
  270. HUMIRA [Suspect]
     Active Substance: ADALIMUMAB
     Route: 058
  271. HUMIRA [Suspect]
     Active Substance: ADALIMUMAB
     Route: 065
  272. HYDROCORTISONE PROBUTATE [Suspect]
     Active Substance: HYDROCORTISONE PROBUTATE
     Indication: Rheumatoid arthritis
     Route: 058
  273. HYDROCORTISONE SODIUM SUCCINATE [Suspect]
     Active Substance: HYDROCORTISONE SODIUM SUCCINATE
     Indication: Rheumatoid arthritis
     Route: 048
  274. HYDROCORTISONE SODIUM SUCCINATE [Suspect]
     Active Substance: HYDROCORTISONE SODIUM SUCCINATE
     Route: 065
  275. HYDROCORTISONE SODIUM SUCCINATE [Suspect]
     Active Substance: HYDROCORTISONE SODIUM SUCCINATE
     Route: 065
  276. HYDROCORTISONE SODIUM SUCCINATE [Suspect]
     Active Substance: HYDROCORTISONE SODIUM SUCCINATE
     Route: 048
  277. HYDROXYCHLOROQUINE [Suspect]
     Active Substance: HYDROXYCHLOROQUINE
     Indication: Rheumatoid arthritis
     Dosage: 40 MG, QD
     Route: 065
  278. HYDROXYCHLOROQUINE [Suspect]
     Active Substance: HYDROXYCHLOROQUINE
     Dosage: 400 MG, QD
     Route: 065
  279. HYDROXYCHLOROQUINE [Suspect]
     Active Substance: HYDROXYCHLOROQUINE
     Route: 048
  280. HYDROXYCHLOROQUINE [Suspect]
     Active Substance: HYDROXYCHLOROQUINE
     Dosage: 400 MG, QD
     Route: 065
  281. HYDROXYCHLOROQUINE [Suspect]
     Active Substance: HYDROXYCHLOROQUINE
     Route: 048
  282. HYDROXYCHLOROQUINE [Suspect]
     Active Substance: HYDROXYCHLOROQUINE
     Route: 065
  283. HYDROXYCHLOROQUINE [Suspect]
     Active Substance: HYDROXYCHLOROQUINE
     Route: 065
  284. HYDROXYCHLOROQUINE [Suspect]
     Active Substance: HYDROXYCHLOROQUINE
     Dosage: 400 MG, QD
     Route: 048
  285. HYDROXYCHLOROQUINE [Suspect]
     Active Substance: HYDROXYCHLOROQUINE
     Route: 048
  286. HYDROXYCHLOROQUINE [Suspect]
     Active Substance: HYDROXYCHLOROQUINE
     Dosage: 400 MG, QD
     Route: 065
  287. HYDROXYCHLOROQUINE [Suspect]
     Active Substance: HYDROXYCHLOROQUINE
     Dosage: 40 MG, QD
     Route: 065
  288. HYDROXYCHLOROQUINE SULFATE [Suspect]
     Active Substance: HYDROXYCHLOROQUINE SULFATE
     Indication: Systemic lupus erythematosus
     Route: 048
  289. HYDROXYCHLOROQUINE SULFATE [Suspect]
     Active Substance: HYDROXYCHLOROQUINE SULFATE
     Indication: Rheumatoid arthritis
     Dosage: 400 MG, QD
     Route: 058
  290. HYDROXYCHLOROQUINE SULFATE [Suspect]
     Active Substance: HYDROXYCHLOROQUINE SULFATE
     Dosage: 40 MG, QD
     Route: 065
  291. HYDROXYCHLOROQUINE SULFATE [Suspect]
     Active Substance: HYDROXYCHLOROQUINE SULFATE
     Route: 048
  292. HYDROXYCHLOROQUINE SULFATE [Suspect]
     Active Substance: HYDROXYCHLOROQUINE SULFATE
     Route: 065
  293. HYDROXYCHLOROQUINE SULFATE [Suspect]
     Active Substance: HYDROXYCHLOROQUINE SULFATE
     Route: 048
  294. HYDROXYCHLOROQUINE SULFATE [Suspect]
     Active Substance: HYDROXYCHLOROQUINE SULFATE
     Dosage: 400 MG, QD
     Route: 048
  295. HYDROXYCHLOROQUINE SULFATE [Suspect]
     Active Substance: HYDROXYCHLOROQUINE SULFATE
     Dosage: 400 MG, QD
     Route: 065
  296. HYDROXYCHLOROQUINE SULFATE [Suspect]
     Active Substance: HYDROXYCHLOROQUINE SULFATE
     Route: 048
  297. HYDROXYCHLOROQUINE SULFATE [Suspect]
     Active Substance: HYDROXYCHLOROQUINE SULFATE
     Route: 065
  298. HYDROXYCHLOROQUINE SULFATE [Suspect]
     Active Substance: HYDROXYCHLOROQUINE SULFATE
     Route: 048
  299. HYDROXYCHLOROQUINE SULFATE [Suspect]
     Active Substance: HYDROXYCHLOROQUINE SULFATE
     Dosage: 4000 MG, QD
     Route: 058
  300. HYDROXYCHLOROQUINE SULFATE [Suspect]
     Active Substance: HYDROXYCHLOROQUINE SULFATE
     Route: 065
  301. HYDROXYCHLOROQUINE SULFATE [Suspect]
     Active Substance: HYDROXYCHLOROQUINE SULFATE
     Dosage: 400 MG, QD
     Route: 065
  302. HYDROXYCHLOROQUINE SULFATE [Suspect]
     Active Substance: HYDROXYCHLOROQUINE SULFATE
     Dosage: 400 MG, QD
     Route: 065
  303. HYDROXYCHLOROQUINE SULFATE [Suspect]
     Active Substance: HYDROXYCHLOROQUINE SULFATE
     Dosage: 40 MG, QD
     Route: 065
  304. HYDROXYCHLOROQUINE SULFATE [Suspect]
     Active Substance: HYDROXYCHLOROQUINE SULFATE
     Dosage: 400 MG, QD
     Route: 048
  305. HYDROXYCHLOROQUINE SULFATE [Suspect]
     Active Substance: HYDROXYCHLOROQUINE SULFATE
     Dosage: 400 MG, QD
     Route: 048
  306. HYDROXYCHLOROQUINE SULFATE [Suspect]
     Active Substance: HYDROXYCHLOROQUINE SULFATE
     Dosage: 400 MG, QD
     Route: 065
  307. HYDROXYCHLOROQUINE SULFATE [Suspect]
     Active Substance: HYDROXYCHLOROQUINE SULFATE
     Route: 048
  308. HYDROXYCHLOROQUINE SULFATE [Suspect]
     Active Substance: HYDROXYCHLOROQUINE SULFATE
     Route: 065
  309. ISOPROPYL ALCOHOL [Suspect]
     Active Substance: ISOPROPYL ALCOHOL
     Indication: Product used for unknown indication
     Route: 065
  310. ISOPROPYL ALCOHOL [Suspect]
     Active Substance: ISOPROPYL ALCOHOL
     Route: 065
  311. LYRICA [Suspect]
     Active Substance: PREGABALIN
     Indication: Product used for unknown indication
     Route: 065
  312. NAPROXEN SODIUM [Suspect]
     Active Substance: NAPROXEN SODIUM
     Indication: Rheumatoid arthritis
     Dosage: 500 MG, BID (2 EVERY 1 DAYS)
     Route: 065
  313. NAPROXEN SODIUM [Suspect]
     Active Substance: NAPROXEN SODIUM
     Route: 065
  314. NAPROXEN SODIUM [Suspect]
     Active Substance: NAPROXEN SODIUM
     Route: 065
  315. NAPROXEN SODIUM [Suspect]
     Active Substance: NAPROXEN SODIUM
     Route: 065
  316. NEOMYCIN [Suspect]
     Active Substance: NEOMYCIN
     Indication: Product used for unknown indication
     Route: 065
  317. ORENCIA [Suspect]
     Active Substance: ABATACEPT
     Indication: Rheumatoid arthritis
     Route: 065
  318. ORENCIA [Suspect]
     Active Substance: ABATACEPT
     Route: 058
  319. ORENCIA [Suspect]
     Active Substance: ABATACEPT
     Route: 058
  320. ORENCIA [Suspect]
     Active Substance: ABATACEPT
     Route: 042
  321. ORENCIA [Suspect]
     Active Substance: ABATACEPT
     Route: 065
  322. ORENCIA [Suspect]
     Active Substance: ABATACEPT
     Route: 058
  323. ORENCIA [Suspect]
     Active Substance: ABATACEPT
     Route: 058
  324. ORENCIA [Suspect]
     Active Substance: ABATACEPT
     Route: 042
  325. OTEZLA [Suspect]
     Active Substance: APREMILAST
     Indication: Product used for unknown indication
     Route: 048
  326. OTEZLA [Suspect]
     Active Substance: APREMILAST
     Dosage: 3 MG, BID (2 EVERY 1 DAYS)
     Route: 048
  327. OXYCODONE TEREPHTHALATE [Suspect]
     Active Substance: OXYCODONE TEREPHTHALATE
     Indication: Product used for unknown indication
     Route: 016
  328. OXYCODONE TEREPHTHALATE [Suspect]
     Active Substance: OXYCODONE TEREPHTHALATE
     Route: 065
  329. PERIOGARD [Suspect]
     Active Substance: CHLORHEXIDINE GLUCONATE
     Indication: Product used for unknown indication
     Route: 002
  330. PERIOGARD [Suspect]
     Active Substance: CHLORHEXIDINE GLUCONATE
     Route: 048
  331. PERIOGARD [Suspect]
     Active Substance: CHLORHEXIDINE GLUCONATE
     Route: 016
  332. PERIOGARD [Suspect]
     Active Substance: CHLORHEXIDINE GLUCONATE
     Route: 065
  333. PHTHALYLSULFATHIAZOLE [Suspect]
     Active Substance: PHTHALYLSULFATHIAZOLE
     Indication: Rheumatoid arthritis
     Route: 065
  334. PHTHALYLSULFATHIAZOLE [Suspect]
     Active Substance: PHTHALYLSULFATHIAZOLE
     Route: 042
  335. PHTHALYLSULFATHIAZOLE [Suspect]
     Active Substance: PHTHALYLSULFATHIAZOLE
     Route: 065
  336. PHTHALYLSULFATHIAZOLE [Suspect]
     Active Substance: PHTHALYLSULFATHIAZOLE
     Route: 048
  337. PHTHALYLSULFATHIAZOLE [Suspect]
     Active Substance: PHTHALYLSULFATHIAZOLE
     Route: 048
  338. PHTHALYLSULFATHIAZOLE [Suspect]
     Active Substance: PHTHALYLSULFATHIAZOLE
     Route: 016
  339. PHTHALYLSULFATHIAZOLE [Suspect]
     Active Substance: PHTHALYLSULFATHIAZOLE
     Route: 065
  340. PHTHALYLSULFATHIAZOLE [Suspect]
     Active Substance: PHTHALYLSULFATHIAZOLE
     Route: 048
  341. PHTHALYLSULFATHIAZOLE [Suspect]
     Active Substance: PHTHALYLSULFATHIAZOLE
     Route: 048
  342. PHTHALYLSULFATHIAZOLE [Suspect]
     Active Substance: PHTHALYLSULFATHIAZOLE
     Dosage: 1000 MG, BID (2000 MG, QD)
     Route: 048
  343. PHTHALYLSULFATHIAZOLE [Suspect]
     Active Substance: PHTHALYLSULFATHIAZOLE
     Route: 048
  344. PHTHALYLSULFATHIAZOLE [Suspect]
     Active Substance: PHTHALYLSULFATHIAZOLE
     Route: 065
  345. PREDNISONE [Suspect]
     Active Substance: PREDNISONE
     Indication: Rheumatoid arthritis
     Route: 065
  346. PREDNISONE [Suspect]
     Active Substance: PREDNISONE
     Indication: Psoriatic arthropathy
     Route: 065
  347. PREDNISONE [Suspect]
     Active Substance: PREDNISONE
     Indication: Condition aggravated
     Route: 048
  348. PREDNISONE [Suspect]
     Active Substance: PREDNISONE
     Route: 048
  349. PREDNISONE [Suspect]
     Active Substance: PREDNISONE
     Route: 048
  350. PREDNISONE [Suspect]
     Active Substance: PREDNISONE
     Route: 065
  351. PREDNISONE [Suspect]
     Active Substance: PREDNISONE
     Route: 042
  352. PREDNISONE [Suspect]
     Active Substance: PREDNISONE
     Route: 048
  353. PSEUDOEPHEDRINE [Suspect]
     Active Substance: PSEUDOEPHEDRINE
     Indication: Product used for unknown indication
     Route: 065
  354. PREGABALIN [Suspect]
     Active Substance: PREGABALIN
     Indication: Product used for unknown indication
     Route: 065
  355. PREGABALIN [Suspect]
     Active Substance: PREGABALIN
     Route: 065
  356. PREGABALIN [Suspect]
     Active Substance: PREGABALIN
     Route: 065
  357. PSEUDOEPHEDRINE HYDROCHLORIDE [Suspect]
     Active Substance: PSEUDOEPHEDRINE HYDROCHLORIDE
     Indication: Rheumatoid arthritis
     Route: 065
  358. PSEUDOEPHEDRINE HYDROCHLORIDE [Suspect]
     Active Substance: PSEUDOEPHEDRINE HYDROCHLORIDE
     Indication: Product used for unknown indication
     Route: 065
  359. PSEUDOEPHEDRINE HYDROCHLORIDE [Suspect]
     Active Substance: PSEUDOEPHEDRINE HYDROCHLORIDE
     Route: 065
  360. CETIRIZINE HYDROCHLORIDE\PSEUDOEPHEDRINE HYDROCHLORIDE [Suspect]
     Active Substance: CETIRIZINE HYDROCHLORIDE\PSEUDOEPHEDRINE HYDROCHLORIDE
     Indication: Rheumatoid arthritis
     Route: 048
  361. CETIRIZINE HYDROCHLORIDE\PSEUDOEPHEDRINE HYDROCHLORIDE [Suspect]
     Active Substance: CETIRIZINE HYDROCHLORIDE\PSEUDOEPHEDRINE HYDROCHLORIDE
     Route: 065
  362. CETIRIZINE HYDROCHLORIDE\PSEUDOEPHEDRINE HYDROCHLORIDE [Suspect]
     Active Substance: CETIRIZINE HYDROCHLORIDE\PSEUDOEPHEDRINE HYDROCHLORIDE
     Route: 065
  363. CETIRIZINE HYDROCHLORIDE\PSEUDOEPHEDRINE HYDROCHLORIDE [Suspect]
     Active Substance: CETIRIZINE HYDROCHLORIDE\PSEUDOEPHEDRINE HYDROCHLORIDE
     Route: 065
  364. CETIRIZINE HYDROCHLORIDE\PSEUDOEPHEDRINE HYDROCHLORIDE [Suspect]
     Active Substance: CETIRIZINE HYDROCHLORIDE\PSEUDOEPHEDRINE HYDROCHLORIDE
     Route: 065
  365. REMICADE [Suspect]
     Active Substance: INFLIXIMAB
     Indication: Rheumatoid arthritis
     Route: 065
  366. REMICADE [Suspect]
     Active Substance: INFLIXIMAB
     Route: 042
  367. REMICADE [Suspect]
     Active Substance: INFLIXIMAB
     Route: 065
  368. REMICADE [Suspect]
     Active Substance: INFLIXIMAB
     Route: 042
  369. SULFASALAZINE [Suspect]
     Active Substance: SULFASALAZINE
     Indication: Rheumatoid arthritis
     Route: 048
  370. SULFASALAZINE [Suspect]
     Active Substance: SULFASALAZINE
     Route: 048
  371. SULFASALAZINE [Suspect]
     Active Substance: SULFASALAZINE
     Route: 065
  372. SULFASALAZINE [Suspect]
     Active Substance: SULFASALAZINE
     Route: 048
  373. SULFASALAZINE [Suspect]
     Active Substance: SULFASALAZINE
     Route: 065
  374. SULFASALAZINE [Suspect]
     Active Substance: SULFASALAZINE
     Route: 048
  375. SULFASALAZINE [Suspect]
     Active Substance: SULFASALAZINE
     Dosage: 1 G, QD(1 EVERY 1 DAYS)
     Route: 048
  376. SULFASALAZINE [Suspect]
     Active Substance: SULFASALAZINE
     Dosage: 1 G, BID, (2 G, QD)
     Route: 065
  377. SULFASALAZINE [Suspect]
     Active Substance: SULFASALAZINE
     Route: 048
  378. SIMPONI [Suspect]
     Active Substance: GOLIMUMAB
     Indication: Rheumatoid arthritis
     Route: 058
  379. SIMPONI [Suspect]
     Active Substance: GOLIMUMAB
     Indication: Psoriatic arthropathy
     Route: 058
  380. SIMPONI [Suspect]
     Active Substance: GOLIMUMAB
     Route: 052
  381. SIMPONI [Suspect]
     Active Substance: GOLIMUMAB
     Route: 042
  382. SIMPONI [Suspect]
     Active Substance: GOLIMUMAB
     Route: 065
  383. STELARA [Suspect]
     Active Substance: USTEKINUMAB
     Indication: Product used for unknown indication
     Route: 065
  384. STELARA [Suspect]
     Active Substance: USTEKINUMAB
     Route: 058
  385. STELARA [Suspect]
     Active Substance: USTEKINUMAB
     Route: 058
  386. STELARA [Suspect]
     Active Substance: USTEKINUMAB
     Route: 042
  387. STELARA [Suspect]
     Active Substance: USTEKINUMAB
     Route: 058
  388. STELARA [Suspect]
     Active Substance: USTEKINUMAB
     Route: 058
  389. SULFAMETHOXAZOLE AND TRIMETHOPRIM [Suspect]
     Active Substance: SULFAMETHOXAZOLE\TRIMETHOPRIM
     Indication: Product used for unknown indication
     Route: 065
  390. SULFAMETHOXAZOLE [Suspect]
     Active Substance: SULFAMETHOXAZOLE
     Indication: Rheumatoid arthritis
     Route: 048
  391. SULFAMETHOXAZOLE [Suspect]
     Active Substance: SULFAMETHOXAZOLE
     Route: 048
  392. SULFAMETHOXAZOLE [Suspect]
     Active Substance: SULFAMETHOXAZOLE
     Route: 048
  393. SULFAMETHOXAZOLE [Suspect]
     Active Substance: SULFAMETHOXAZOLE
     Route: 065
  394. SULFAMETHOXAZOLE [Suspect]
     Active Substance: SULFAMETHOXAZOLE
     Route: 065
  395. SULFAMETHOXAZOLE [Suspect]
     Active Substance: SULFAMETHOXAZOLE
     Route: 065
  396. SULFAMETHOXAZOLE [Suspect]
     Active Substance: SULFAMETHOXAZOLE
     Route: 048
  397. SULFAMETHOXAZOLE [Suspect]
     Active Substance: SULFAMETHOXAZOLE
     Route: 048
  398. SULFAMETHOXAZOLE [Suspect]
     Active Substance: SULFAMETHOXAZOLE
     Route: 048
  399. SULFAMETHOXAZOLE [Suspect]
     Active Substance: SULFAMETHOXAZOLE
     Route: 065
  400. SULFAMETHOXAZOLE [Suspect]
     Active Substance: SULFAMETHOXAZOLE
     Route: 048
  401. SULFAMETHOXAZOLE [Suspect]
     Active Substance: SULFAMETHOXAZOLE
     Dosage: 500 MG, QD
     Route: 048
  402. SULFAMETHOXAZOLE [Suspect]
     Active Substance: SULFAMETHOXAZOLE
     Route: 065
  403. SULFAMETHOXAZOLE [Suspect]
     Active Substance: SULFAMETHOXAZOLE
     Route: 065
  404. SULFAMETHOXAZOLE [Suspect]
     Active Substance: SULFAMETHOXAZOLE
     Route: 065
  405. SULFAMETHOXAZOLE [Suspect]
     Active Substance: SULFAMETHOXAZOLE
     Dosage: UNK, QD
     Route: 048
  406. SULFAMETHOXAZOLE [Suspect]
     Active Substance: SULFAMETHOXAZOLE
     Route: 048
  407. SULFAMETHOXAZOLE [Suspect]
     Active Substance: SULFAMETHOXAZOLE
     Route: 058
  408. SULFAMETHOXAZOLE [Suspect]
     Active Substance: SULFAMETHOXAZOLE
     Route: 048
  409. SULFAMETHOXAZOLE [Suspect]
     Active Substance: SULFAMETHOXAZOLE
     Dosage: 2000 MG, QD
     Route: 048
  410. SULFAMETHOXAZOLE [Suspect]
     Active Substance: SULFAMETHOXAZOLE
     Route: 065
  411. SULFAMETHOXAZOLE [Suspect]
     Active Substance: SULFAMETHOXAZOLE
     Route: 065
  412. SULFAMETHOXAZOLE [Suspect]
     Active Substance: SULFAMETHOXAZOLE
     Route: 042
  413. SULFAMETHOXAZOLE [Suspect]
     Active Substance: SULFAMETHOXAZOLE
     Route: 042
  414. SULFAMETHOXAZOLE [Suspect]
     Active Substance: SULFAMETHOXAZOLE
     Route: 048
  415. CALCIUM CARBONATE [Suspect]
     Active Substance: CALCIUM CARBONATE
     Indication: Product used for unknown indication
     Route: 065
  416. TOFACITINIB CITRATE [Suspect]
     Active Substance: TOFACITINIB CITRATE
     Indication: Rheumatoid arthritis
     Dosage: 5 MG, QW (5 MG, 1 EVERY 1 WEEKS)
     Route: 065
  417. TOFACITINIB CITRATE [Suspect]
     Active Substance: TOFACITINIB CITRATE
     Indication: Psoriatic arthropathy
     Route: 058
  418. TOFACITINIB CITRATE [Suspect]
     Active Substance: TOFACITINIB CITRATE
     Route: 065
  419. TOFACITINIB CITRATE [Suspect]
     Active Substance: TOFACITINIB CITRATE
     Dosage: 5 MG, QW (5 MG, 1 EVERY 1 WEEKS)
     Route: 048
  420. TOFACITINIB CITRATE [Suspect]
     Active Substance: TOFACITINIB CITRATE
     Route: 048
  421. TOFACITINIB CITRATE [Suspect]
     Active Substance: TOFACITINIB CITRATE
     Route: 065
  422. TRAMADOL HYDROCHLORIDE [Suspect]
     Active Substance: TRAMADOL HYDROCHLORIDE
     Indication: Product used for unknown indication
     Route: 065
  423. CHLORHEXIDINE GLUCONATE [Suspect]
     Active Substance: CHLORHEXIDINE GLUCONATE
     Indication: Product used for unknown indication
     Route: 002
  424. CHLORHEXIDINE GLUCONATE [Suspect]
     Active Substance: CHLORHEXIDINE GLUCONATE
     Route: 065
  425. CHLORHEXIDINE GLUCONATE [Suspect]
     Active Substance: CHLORHEXIDINE GLUCONATE
     Route: 048
  426. USTEKINUMAB [Suspect]
     Active Substance: USTEKINUMAB
     Indication: Psoriatic arthropathy
     Route: 058
  427. USTEKINUMAB [Suspect]
     Active Substance: USTEKINUMAB
     Route: 065
  428. USTEKINUMAB [Suspect]
     Active Substance: USTEKINUMAB
     Route: 058
  429. USTEKINUMAB [Suspect]
     Active Substance: USTEKINUMAB
     Route: 058
  430. USTEKINUMAB [Suspect]
     Active Substance: USTEKINUMAB
     Route: 042
  431. USTEKINUMAB [Suspect]
     Active Substance: USTEKINUMAB
     Route: 065
  432. USTEKINUMAB [Suspect]
     Active Substance: USTEKINUMAB
     Route: 058
  433. VITAMIN C [Suspect]
     Active Substance: ASCORBIC ACID
     Indication: Product used for unknown indication
     Route: 016
  434. VITAMIN D3 [Suspect]
     Active Substance: CHOLECALCIFEROL
     Indication: Product used for unknown indication
     Route: 065
  435. TRIAMCINOLONE ACETONIDE [Suspect]
     Active Substance: TRIAMCINOLONE ACETONIDE
     Indication: Rheumatoid arthritis
     Route: 014
  436. XELJANZ [Suspect]
     Active Substance: TOFACITINIB CITRATE
     Indication: Rheumatoid arthritis
     Route: 065
  437. XELJANZ [Suspect]
     Active Substance: TOFACITINIB CITRATE
     Route: 048
  438. HYDROCORTISONE BUTYRATE [Suspect]
     Active Substance: HYDROCORTISONE BUTYRATE
     Indication: Rheumatoid arthritis
     Route: 058
  439. APREPITANT [Suspect]
     Active Substance: APREPITANT
     Indication: Product used for unknown indication
     Route: 042
  440. OXYCODONE HYDROCHLORIDE [Suspect]
     Active Substance: OXYCODONE HYDROCHLORIDE
     Indication: Product used for unknown indication
     Route: 065
  441. FLUMETHASONE PIVALATE\NEOMYCIN SULFATE [Suspect]
     Active Substance: FLUMETHASONE PIVALATE\NEOMYCIN SULFATE
     Indication: Rheumatoid arthritis
     Route: 065
  442. SULFASALAZINE [Suspect]
     Active Substance: SULFASALAZINE
     Indication: Rheumatoid arthritis
     Route: 065
  443. SULFASALAZINE [Suspect]
     Active Substance: SULFASALAZINE
     Route: 065
  444. SULFASALAZINE [Suspect]
     Active Substance: SULFASALAZINE
     Route: 065
  445. SULFASALAZINE [Suspect]
     Active Substance: SULFASALAZINE
     Route: 048
  446. SULFASALAZINE [Suspect]
     Active Substance: SULFASALAZINE
     Dosage: 500 MG, QD
     Route: 048
  447. SULFASALAZINE [Suspect]
     Active Substance: SULFASALAZINE
     Dosage: 2000 MG, QD
     Route: 048
  448. SULFASALAZINE [Suspect]
     Active Substance: SULFASALAZINE
     Dosage: 1000 MG, QD
     Route: 048
  449. SULFASALAZINE [Suspect]
     Active Substance: SULFASALAZINE
     Dosage: 4000 MG, QD
     Route: 048
  450. SULFASALAZINE [Suspect]
     Active Substance: SULFASALAZINE
     Route: 058
  451. SULFASALAZINE [Suspect]
     Active Substance: SULFASALAZINE
     Dosage: 2 G, QD (1 G, BID)
     Route: 065
  452. SULFASALAZINE [Suspect]
     Active Substance: SULFASALAZINE
     Dosage: 1000 MG, QD
     Route: 048
  453. SULFASALAZINE [Suspect]
     Active Substance: SULFASALAZINE
     Route: 048
  454. SULFASALAZINE [Suspect]
     Active Substance: SULFASALAZINE
     Route: 065
  455. SULFASALAZINE [Suspect]
     Active Substance: SULFASALAZINE
     Route: 048
  456. SULFASALAZINE [Suspect]
     Active Substance: SULFASALAZINE
     Dosage: 4000 MG, QD
     Route: 048
  457. SULFASALAZINE [Suspect]
     Active Substance: SULFASALAZINE
     Dosage: UNK, QD
     Route: 065
  458. SULFASALAZINE [Suspect]
     Active Substance: SULFASALAZINE
     Dosage: 1 G, QD
     Route: 065
  459. SULFASALAZINE [Suspect]
     Active Substance: SULFASALAZINE
     Route: 048
  460. SULFASALAZINE [Suspect]
     Active Substance: SULFASALAZINE
     Route: 048
  461. SULFASALAZINE [Suspect]
     Active Substance: SULFASALAZINE
     Route: 048
  462. SULFASALAZINE [Suspect]
     Active Substance: SULFASALAZINE
     Route: 058
  463. SULFASALAZINE [Suspect]
     Active Substance: SULFASALAZINE
     Dosage: 500 MG, QD
     Route: 048
  464. SULFASALAZINE [Suspect]
     Active Substance: SULFASALAZINE
     Dosage: 1000 MG, QD
     Route: 048
  465. SULFASALAZINE [Suspect]
     Active Substance: SULFASALAZINE
     Route: 065
  466. SULFASALAZINE [Suspect]
     Active Substance: SULFASALAZINE
     Route: 048
  467. PERCOCET [Suspect]
     Active Substance: ACETAMINOPHEN\OXYCODONE HYDROCHLORIDE
     Indication: Product used for unknown indication
     Route: 065
  468. DICLOFENAC DIETHYLAMINE [Suspect]
     Active Substance: DICLOFENAC DIETHYLAMINE
     Indication: Product used for unknown indication
     Route: 065
  469. CETIRIZINE HYDROCHLORIDE [Suspect]
     Active Substance: CETIRIZINE HYDROCHLORIDE
     Indication: Rheumatoid arthritis
     Dosage: 10 MG, QD
     Route: 065
  470. CETIRIZINE HYDROCHLORIDE [Suspect]
     Active Substance: CETIRIZINE HYDROCHLORIDE
     Indication: Off label use
     Dosage: 10 MG, QD
     Route: 048
  471. CETIRIZINE HYDROCHLORIDE [Suspect]
     Active Substance: CETIRIZINE HYDROCHLORIDE
     Route: 065
  472. CETIRIZINE HYDROCHLORIDE [Suspect]
     Active Substance: CETIRIZINE HYDROCHLORIDE
     Route: 065
  473. CETIRIZINE HYDROCHLORIDE [Suspect]
     Active Substance: CETIRIZINE HYDROCHLORIDE
     Route: 048
  474. CETIRIZINE HYDROCHLORIDE [Suspect]
     Active Substance: CETIRIZINE HYDROCHLORIDE
     Route: 065
  475. CETIRIZINE HYDROCHLORIDE [Suspect]
     Active Substance: CETIRIZINE HYDROCHLORIDE
     Dosage: 10 MG, QD
     Route: 048
  476. CETIRIZINE HYDROCHLORIDE [Suspect]
     Active Substance: CETIRIZINE HYDROCHLORIDE
     Route: 065
  477. CETIRIZINE HYDROCHLORIDE [Suspect]
     Active Substance: CETIRIZINE HYDROCHLORIDE
     Route: 048
  478. CETIRIZINE HYDROCHLORIDE [Suspect]
     Active Substance: CETIRIZINE HYDROCHLORIDE
     Dosage: 10 MG, QD
     Route: 048
  479. CETIRIZINE HYDROCHLORIDE [Suspect]
     Active Substance: CETIRIZINE HYDROCHLORIDE
     Route: 065
  480. CETIRIZINE HYDROCHLORIDE [Suspect]
     Active Substance: CETIRIZINE HYDROCHLORIDE
     Route: 065
  481. CETIRIZINE HYDROCHLORIDE [Suspect]
     Active Substance: CETIRIZINE HYDROCHLORIDE
     Route: 048
  482. CETIRIZINE HYDROCHLORIDE [Suspect]
     Active Substance: CETIRIZINE HYDROCHLORIDE
     Route: 065
  483. CETIRIZINE HYDROCHLORIDE [Suspect]
     Active Substance: CETIRIZINE HYDROCHLORIDE
     Route: 048
  484. TOCILIZUMAB [Suspect]
     Active Substance: TOCILIZUMAB
     Indication: Rheumatoid arthritis
     Route: 065
  485. TOCILIZUMAB [Suspect]
     Active Substance: TOCILIZUMAB
     Route: 058
  486. FLUMETHASONE PIVALATE [Suspect]
     Active Substance: FLUMETHASONE PIVALATE
     Indication: Rheumatoid arthritis
     Route: 058
  487. CETIRIZINE HYDROCHLORIDE [Suspect]
     Active Substance: CETIRIZINE HYDROCHLORIDE
     Indication: Rheumatoid arthritis
     Route: 048
  488. CETIRIZINE HYDROCHLORIDE [Suspect]
     Active Substance: CETIRIZINE HYDROCHLORIDE
     Route: 065
  489. CETIRIZINE HYDROCHLORIDE [Suspect]
     Active Substance: CETIRIZINE HYDROCHLORIDE
     Route: 065
  490. CETIRIZINE HYDROCHLORIDE [Suspect]
     Active Substance: CETIRIZINE HYDROCHLORIDE
     Indication: Rheumatoid arthritis
     Route: 048
  491. CETIRIZINE HYDROCHLORIDE [Suspect]
     Active Substance: CETIRIZINE HYDROCHLORIDE
     Dosage: 10 MG, QD
     Route: 048
  492. CETIRIZINE HYDROCHLORIDE [Suspect]
     Active Substance: CETIRIZINE HYDROCHLORIDE
     Route: 065
  493. CETIRIZINE HYDROCHLORIDE [Suspect]
     Active Substance: CETIRIZINE HYDROCHLORIDE
     Route: 065
  494. CETIRIZINE HYDROCHLORIDE [Suspect]
     Active Substance: CETIRIZINE HYDROCHLORIDE
     Dosage: 10 MG, QD
     Route: 048
  495. CETIRIZINE HYDROCHLORIDE [Suspect]
     Active Substance: CETIRIZINE HYDROCHLORIDE
     Route: 065
  496. CETIRIZINE HYDROCHLORIDE [Suspect]
     Active Substance: CETIRIZINE HYDROCHLORIDE
     Route: 048
  497. CETIRIZINE HYDROCHLORIDE [Suspect]
     Active Substance: CETIRIZINE HYDROCHLORIDE
     Route: 048
  498. CETIRIZINE HYDROCHLORIDE [Suspect]
     Active Substance: CETIRIZINE HYDROCHLORIDE
     Dosage: 10 MG, QD
     Route: 048
  499. CETIRIZINE HYDROCHLORIDE [Suspect]
     Active Substance: CETIRIZINE HYDROCHLORIDE
     Route: 065
  500. CETIRIZINE HYDROCHLORIDE [Suspect]
     Active Substance: CETIRIZINE HYDROCHLORIDE
     Dosage: 10 MG, QD
     Route: 065
  501. CETIRIZINE HYDROCHLORIDE [Suspect]
     Active Substance: CETIRIZINE HYDROCHLORIDE
     Dosage: 10 MG, QD
     Route: 065
  502. CETIRIZINE HYDROCHLORIDE [Suspect]
     Active Substance: CETIRIZINE HYDROCHLORIDE
     Dosage: 10 MG, QD
     Route: 048
  503. CETIRIZINE HYDROCHLORIDE [Suspect]
     Active Substance: CETIRIZINE HYDROCHLORIDE
     Route: 065
  504. CETIRIZINE HYDROCHLORIDE [Suspect]
     Active Substance: CETIRIZINE HYDROCHLORIDE
     Route: 065
  505. GOLIMUMAB [Suspect]
     Active Substance: GOLIMUMAB
     Indication: Rheumatoid arthritis
     Route: 058
  506. GOLIMUMAB [Suspect]
     Active Substance: GOLIMUMAB
     Route: 065
  507. CERTOLIZUMAB PEGOL [Suspect]
     Active Substance: CERTOLIZUMAB PEGOL
     Indication: Product used for unknown indication
     Route: 065
  508. TUMS [Suspect]
     Active Substance: CALCIUM CARBONATE
     Indication: Product used for unknown indication
     Route: 065
  509. TUMS [Suspect]
     Active Substance: CALCIUM CARBONATE
     Route: 065
  510. TUMS [Suspect]
     Active Substance: CALCIUM CARBONATE
     Route: 065
  511. TUMS [Suspect]
     Active Substance: CALCIUM CARBONATE
     Route: 065
  512. TUMS [Suspect]
     Active Substance: CALCIUM CARBONATE
     Route: 065
  513. TOFACITINIB [Suspect]
     Active Substance: TOFACITINIB
     Indication: Rheumatoid arthritis
     Route: 048
  514. TOFACITINIB [Suspect]
     Active Substance: TOFACITINIB
     Route: 065
  515. FLUMETHASONE PIVALATE\NEOMYCIN SULFATE [Suspect]
     Active Substance: FLUMETHASONE PIVALATE\NEOMYCIN SULFATE
     Indication: Rheumatoid arthritis
     Route: 065
  516. HYDROCORTISONE PROBUTATE [Suspect]
     Active Substance: HYDROCORTISONE PROBUTATE
     Indication: Rheumatoid arthritis
     Route: 058
  517. DESOXIMETASONE [Suspect]
     Active Substance: DESOXIMETASONE
     Indication: Rheumatoid arthritis
     Route: 058
  518. DESOXIMETASONE [Suspect]
     Active Substance: DESOXIMETASONE
     Route: 058
  519. DESOXIMETASONE [Suspect]
     Active Substance: DESOXIMETASONE
     Route: 058
  520. DESOXIMETASONE [Suspect]
     Active Substance: DESOXIMETASONE
     Route: 058
  521. DESOXIMETASONE [Suspect]
     Active Substance: DESOXIMETASONE
     Route: 058
  522. DESOXIMETASONE [Suspect]
     Active Substance: DESOXIMETASONE
     Route: 048
  523. DESOXIMETASONE [Suspect]
     Active Substance: DESOXIMETASONE
     Route: 048
  524. DESOXIMETASONE [Suspect]
     Active Substance: DESOXIMETASONE
     Route: 003
  525. DESOXIMETASONE [Suspect]
     Active Substance: DESOXIMETASONE
     Route: 003
  526. DESOXIMETASONE [Suspect]
     Active Substance: DESOXIMETASONE
     Route: 003
  527. DESOXIMETASONE [Suspect]
     Active Substance: DESOXIMETASONE
     Route: 048
  528. DESOXIMETASONE [Suspect]
     Active Substance: DESOXIMETASONE
     Route: 048
  529. DESOXIMETASONE [Suspect]
     Active Substance: DESOXIMETASONE
     Route: 048
  530. DESOXIMETASONE [Suspect]
     Active Substance: DESOXIMETASONE
     Route: 048
  531. DESOXIMETASONE [Suspect]
     Active Substance: DESOXIMETASONE
     Route: 048
  532. DESOXIMETASONE [Suspect]
     Active Substance: DESOXIMETASONE
     Route: 048
  533. DESOXIMETASONE [Suspect]
     Active Substance: DESOXIMETASONE
     Route: 065
  534. DESOXIMETASONE [Suspect]
     Active Substance: DESOXIMETASONE
     Route: 065
  535. DESOXIMETASONE [Suspect]
     Active Substance: DESOXIMETASONE
     Route: 065
  536. DESOXIMETASONE [Suspect]
     Active Substance: DESOXIMETASONE
     Route: 065
  537. DESOXIMETASONE [Suspect]
     Active Substance: DESOXIMETASONE
     Route: 065
  538. DESOXIMETASONE [Suspect]
     Active Substance: DESOXIMETASONE
     Route: 065
  539. DESOXIMETASONE [Suspect]
     Active Substance: DESOXIMETASONE
     Route: 065
  540. DESOXIMETASONE [Suspect]
     Active Substance: DESOXIMETASONE
     Route: 058
  541. DESOXIMETASONE [Suspect]
     Active Substance: DESOXIMETASONE
     Route: 042
  542. DESOXIMETASONE [Suspect]
     Active Substance: DESOXIMETASONE
     Route: 058
  543. DESOXIMETASONE [Suspect]
     Active Substance: DESOXIMETASONE
     Route: 058
  544. DESOXIMETASONE [Suspect]
     Active Substance: DESOXIMETASONE
     Route: 003
  545. DESOXIMETASONE [Suspect]
     Active Substance: DESOXIMETASONE
     Route: 003
  546. DESOXIMETASONE [Suspect]
     Active Substance: DESOXIMETASONE
     Route: 003
  547. DESOXIMETASONE [Suspect]
     Active Substance: DESOXIMETASONE
     Route: 003
  548. DESOXIMETASONE [Suspect]
     Active Substance: DESOXIMETASONE
     Route: 065
  549. DESOXIMETASONE [Suspect]
     Active Substance: DESOXIMETASONE
     Route: 048
  550. DESOXIMETASONE [Suspect]
     Active Substance: DESOXIMETASONE
     Route: 048
  551. DESOXIMETASONE [Suspect]
     Active Substance: DESOXIMETASONE
     Route: 048
  552. DESOXIMETASONE [Suspect]
     Active Substance: DESOXIMETASONE
     Route: 048
  553. DESOXIMETASONE [Suspect]
     Active Substance: DESOXIMETASONE
     Route: 058
  554. DESOXIMETASONE [Suspect]
     Active Substance: DESOXIMETASONE
     Route: 065
  555. DESOXIMETASONE [Suspect]
     Active Substance: DESOXIMETASONE
     Route: 065
  556. DESOXIMETASONE [Suspect]
     Active Substance: DESOXIMETASONE
     Dosage: 25 MG, QW
     Route: 048
  557. DESOXIMETASONE [Suspect]
     Active Substance: DESOXIMETASONE
     Route: 065
  558. DESOXIMETASONE [Suspect]
     Active Substance: DESOXIMETASONE
     Route: 065
  559. DESOXIMETASONE [Suspect]
     Active Substance: DESOXIMETASONE
     Route: 065
  560. DESOXIMETASONE [Suspect]
     Active Substance: DESOXIMETASONE
     Dosage: UNK, QW
     Route: 048
  561. PREDNISONE [Suspect]
     Active Substance: PREDNISONE
     Indication: Rheumatoid arthritis
     Route: 048
  562. CALTRATE [Suspect]
     Active Substance: CALCIUM CARBONATE
     Indication: Product used for unknown indication
     Route: 065
  563. CALTRATE [Suspect]
     Active Substance: CALCIUM CARBONATE
     Route: 065
  564. PANADOL [Suspect]
     Active Substance: ACETAMINOPHEN
     Indication: Rheumatoid arthritis
     Route: 065
  565. PANADOL [Suspect]
     Active Substance: ACETAMINOPHEN
     Route: 065
  566. COSENTYX [Concomitant]
     Active Substance: SECUKINUMAB
     Indication: Rheumatoid arthritis
     Route: 065
  567. COSENTYX [Concomitant]
     Active Substance: SECUKINUMAB
     Indication: Psoriatic arthropathy
     Route: 065
  568. COSENTYX [Concomitant]
     Active Substance: SECUKINUMAB
     Indication: Product used for unknown indication
     Route: 005
  569. PANTOPRAZOLE SODIUM ANHYDROUS [Suspect]
     Active Substance: PANTOPRAZOLE SODIUM ANHYDROUS
     Indication: Product used for unknown indication
     Route: 065
  570. CELECOXIB [Suspect]
     Active Substance: CELECOXIB
     Indication: Rheumatoid arthritis
     Dosage: 1 DOSAGE FORM, QD
     Route: 065
  571. CELECOXIB [Suspect]
     Active Substance: CELECOXIB
     Indication: Psoriatic arthropathy
     Route: 065
  572. DESOXIMETASONE [Suspect]
     Active Substance: DESOXIMETASONE
     Indication: Rheumatoid arthritis
     Route: 048
  573. DICLOFENAC DIETHYLAMINE [Suspect]
     Active Substance: DICLOFENAC DIETHYLAMINE
     Indication: Product used for unknown indication
     Route: 065
  574. ACETAMINOPHEN [Concomitant]
     Active Substance: ACETAMINOPHEN
     Indication: Product used for unknown indication
     Route: 065
  575. ACETAMINOPHEN AND CODEINE [Concomitant]
     Active Substance: ACETAMINOPHEN\CODEINE PHOSPHATE
     Indication: Product used for unknown indication
     Route: 065
  576. PANTOPRAZOLE SODIUM [Concomitant]
     Active Substance: PANTOPRAZOLE SODIUM
     Indication: Product used for unknown indication
     Route: 065
  577. PANTOPRAZOLE SODIUM [Concomitant]
     Active Substance: PANTOPRAZOLE SODIUM
     Route: 065
  578. ATIVAN [Concomitant]
     Active Substance: LORAZEPAM
     Indication: Product used for unknown indication
     Route: 065
  579. CAFFEINE [Concomitant]
     Active Substance: CAFFEINE
     Indication: Product used for unknown indication
     Route: 065
  580. CETIRIZINE [Concomitant]
     Active Substance: CETIRIZINE HYDROCHLORIDE
     Indication: Product used for unknown indication
     Route: 065
  581. CETIRIZINE [Concomitant]
     Active Substance: CETIRIZINE HYDROCHLORIDE
     Route: 065
  582. CHOLECALCIFEROL [Concomitant]
     Active Substance: CHOLECALCIFEROL
     Indication: Product used for unknown indication
     Route: 065
  583. CODEINE [Concomitant]
     Active Substance: CODEINE
     Indication: Product used for unknown indication
     Route: 065
  584. DESOGESTREL AND ETHINYL ESTRADIOL [Concomitant]
     Active Substance: DESOGESTREL\ETHINYL ESTRADIOL
     Indication: Product used for unknown indication
     Route: 065
  585. ERGOCALCIFEROL [Suspect]
     Active Substance: ERGOCALCIFEROL
     Indication: Product used for unknown indication
     Route: 065
  586. GLUCOSAMINE [Concomitant]
     Active Substance: GLUCOSAMINE
     Indication: Product used for unknown indication
     Route: 065
  587. IBUPROFEN [Concomitant]
     Active Substance: IBUPROFEN
     Indication: Product used for unknown indication
     Route: 065
  588. IBUPROFEN [Concomitant]
     Active Substance: IBUPROFEN
     Route: 065
  589. LANSOPRAZOLE [Concomitant]
     Active Substance: LANSOPRAZOLE
     Indication: Product used for unknown indication
     Route: 065
  590. MARVELON [Concomitant]
     Active Substance: DESOGESTREL\ETHINYL ESTRADIOL
     Indication: Product used for unknown indication
     Route: 065
  591. LORAZEPAM [Concomitant]
     Active Substance: LORAZEPAM
     Indication: Product used for unknown indication
     Route: 065
  592. CETIRIZINE HYDROCHLORIDE [Concomitant]
     Active Substance: CETIRIZINE HYDROCHLORIDE
     Indication: Product used for unknown indication
     Route: 065
  593. FISH OIL [Concomitant]
     Active Substance: FISH OIL
     Indication: Product used for unknown indication
     Route: 065
  594. SULFASALAZINE [Concomitant]
     Active Substance: SULFASALAZINE
     Indication: Product used for unknown indication
     Route: 065
  595. TRIMETHOPRIM [Concomitant]
     Active Substance: TRIMETHOPRIM
     Indication: Product used for unknown indication
     Route: 065
  596. TYLENOL WITH CODEINE [Concomitant]
     Active Substance: ACETAMINOPHEN\CODEINE PHOSPHATE
     Indication: Product used for unknown indication
     Route: 065
  597. VITAMIN D3 [Concomitant]
     Active Substance: CHOLECALCIFEROL
     Indication: Product used for unknown indication
     Route: 065
  598. VITAMIN C [Concomitant]
     Active Substance: ASCORBIC ACID
     Indication: Product used for unknown indication
     Route: 065
  599. ZOPICLONE [Concomitant]
     Active Substance: ZOPICLONE
     Indication: Product used for unknown indication
     Route: 065

REACTIONS (14)
  - Urticaria [Fatal]
  - Vomiting [Fatal]
  - Weight increased [Fatal]
  - Wheezing [Fatal]
  - Wound [Fatal]
  - Off label use [Fatal]
  - Sleep disorder due to general medical condition, insomnia type [Fatal]
  - Malaise [Fatal]
  - Alopecia [Fatal]
  - Blister [Fatal]
  - Drug intolerance [Fatal]
  - Musculoskeletal stiffness [Fatal]
  - Product use in unapproved indication [Fatal]
  - Medication error [Fatal]
